FAERS Safety Report 18417987 (Version 1)
Quarter: 2020Q4

REPORT INFORMATION
  Report Type: Spontaneous
  Country: CA (occurrence: CA)
  Receive Date: 20201023
  Receipt Date: 20201023
  Transmission Date: 20210114
  Serious: Yes (Other)
  Sender: FDA-Public Use
  Company Number: CA-SAMSUNG BIOEPIS-SB-2020-32369

PATIENT
  Age: 49 Year
  Sex: Male
  Weight: 82 kg

DRUGS (4)
  1. CALCIUM [Concomitant]
     Active Substance: CALCIUM
     Indication: PRODUCT USED FOR UNKNOWN INDICATION
     Dosage: UNKNOWN
     Route: 065
  2. INFLIXIMAB [Suspect]
     Active Substance: INFLIXIMAB
     Indication: COLITIS ULCERATIVE
     Route: 042
  3. VITAMIN D [Concomitant]
     Active Substance: VITAMIN D NOS
     Indication: PRODUCT USED FOR UNKNOWN INDICATION
     Dosage: UNKNOWN
     Route: 065
  4. ACETAMINOPHEN. [Concomitant]
     Active Substance: ACETAMINOPHEN
     Indication: PREMEDICATION
     Route: 048

REACTIONS (11)
  - Incorrect dose administered [Recovered/Resolved]
  - Intentional product use issue [Recovered/Resolved]
  - Erythema [Recovered/Resolved]
  - Localised oedema [Recovered/Resolved]
  - Pericarditis [Recovered/Resolved]
  - Product use issue [Recovered/Resolved]
  - Off label use [Recovered/Resolved]
  - Condition aggravated [Recovered/Resolved]
  - Back pain [Recovered/Resolved]
  - Blood pressure fluctuation [Recovered/Resolved]
  - Drug ineffective [Recovered/Resolved]
